FAERS Safety Report 8535082-9 (Version None)
Quarter: 2012Q3

REPORT INFORMATION
  Report Type: 
  Country: None (occurrence: None)
  Receive Date: 20120724
  Receipt Date: 20120718
  Transmission Date: 20120928
  Serious: Yes (Other)
  Sender: FDA-Public Use
  Company Number: JP-PFIZER INC-2012165768

PATIENT
  Age: 73 Year
  Sex: Male

DRUGS (2)
  1. MEROPENEM [Suspect]
     Indication: PNEUMONIA ASPIRATION
     Dosage: UNK
  2. AMPICILLIN SODIUM/SULBACTAM SODIUM [Suspect]
     Indication: PNEUMONIA ASPIRATION

REACTIONS (2)
  - SEPTIC SHOCK [None]
  - SYSTEMIC CANDIDA [None]
